FAERS Safety Report 11603498 (Version 1)
Quarter: 2015Q4

REPORT INFORMATION
  Report Type: Spontaneous
  Country: JP (occurrence: JP)
  Receive Date: 20151007
  Receipt Date: 20151007
  Transmission Date: 20160304
  Serious: Yes (Other)
  Sender: FDA-Public Use
  Company Number: JP-PFIZER INC-2015332040

PATIENT
  Age: 45 Year
  Sex: Male

DRUGS (3)
  1. CELECOX [Suspect]
     Active Substance: CELECOXIB
     Indication: ANALGESIC THERAPY
     Dosage: 200 MG, 2X/DAY (TWICE DAILY)
     Route: 048
     Dates: start: 20150807, end: 20150816
  2. CELECOX [Suspect]
     Active Substance: CELECOXIB
     Dosage: 100 MG, AS NEEDED
     Route: 048
     Dates: start: 20150817, end: 20150912
  3. CELECOX [Suspect]
     Active Substance: CELECOXIB
     Dosage: 100 MG, UNK
     Route: 048
     Dates: start: 20150913

REACTIONS (2)
  - Intentional product use issue [Unknown]
  - Interstitial lung disease [Not Recovered/Not Resolved]

NARRATIVE: CASE EVENT DATE: 20150807
